FAERS Safety Report 5300782-0 (Version None)
Quarter: 2007Q2

REPORT INFORMATION
  Report Type: 
  Country: None (occurrence: None)
  Receive Date: 20070418
  Receipt Date: 20070412
  Transmission Date: 20071010
  Serious: Yes (Other)
  Sender: FDA-Public Use
  Company Number: 2007UW07230

PATIENT
  Age: 44 Year
  Sex: Female

DRUGS (8)
  1. TOPROL-XL [Suspect]
     Indication: SUPRAVENTRICULAR TACHYCARDIA
     Route: 048
     Dates: start: 20050101
  2. TOPROL-XL [Suspect]
     Route: 048
  3. TOPROL-XL [Suspect]
     Route: 048
  4. CARTIA XT [Concomitant]
  5. AVAPRO [Concomitant]
  6. ASPIRIN [Concomitant]
  7. LANTUS [Concomitant]
     Indication: DIABETES MELLITUS
     Dates: start: 20060501
  8. NOVABID [Concomitant]
     Indication: DIABETES MELLITUS
     Dates: start: 20060501

REACTIONS (4)
  - AMNESIA [None]
  - HYPERGLYCAEMIA [None]
  - IMPAIRED WORK ABILITY [None]
  - VISUAL DISTURBANCE [None]
